FAERS Safety Report 15307447 (Version 1)
Quarter: 2020Q3

REPORT INFORMATION
  Report Type: Spontaneous
  Country: US (occurrence: US)
  Receive Date: 20180822
  Receipt Date: 20180822
  Transmission Date: 20201104
  Serious: Yes (Hospitalization)
  Sender: FDA-Public Use
  Company Number: US-TEVA-2018-US-946496

PATIENT
  Age: 45 Year
  Sex: Female

DRUGS (7)
  1. EPOPROSTENOL. [Suspect]
     Active Substance: EPOPROSTENOL
     Indication: RIGHT VENTRICULAR FAILURE
     Route: 042
  2. DURVALUMAB. [Suspect]
     Active Substance: DURVALUMAB
     Indication: METASTATIC SQUAMOUS CELL CARCINOMA
     Dosage: ONCE EVERY TWO WEEKS
     Route: 065
  3. CEDIRANIB. [Suspect]
     Active Substance: CEDIRANIB
     Indication: METASTATIC SQUAMOUS CELL CARCINOMA
  4. NITRIC OXIDE. [Suspect]
     Active Substance: NITRIC OXIDE
     Indication: PULMONARY HYPERTENSION
     Route: 065
  5. DURVALUMAB. [Suspect]
     Active Substance: DURVALUMAB
     Indication: METASTATIC SQUAMOUS CELL CARCINOMA
     Dosage: ONCE EVERY TWO WEEKS
     Route: 065
  6. CEDIRANIB. [Suspect]
     Active Substance: CEDIRANIB
     Indication: METASTATIC SQUAMOUS CELL CARCINOMA
     Route: 065
  7. RIOCIGUAT. [Concomitant]
     Active Substance: RIOCIGUAT
     Route: 065

REACTIONS (4)
  - Pulmonary arterial wedge pressure increased [Unknown]
  - Pulmonary arterial pressure increased [Unknown]
  - Paradoxical drug reaction [Unknown]
  - Hypoxia [Unknown]
